FAERS Safety Report 5025425-5 (Version None)
Quarter: 2006Q2

REPORT INFORMATION
  Report Type: 
  Country: None (occurrence: None)
  Receive Date: 20060608
  Receipt Date: 20060601
  Transmission Date: 20061013
  Serious: Yes (Hospitalization)
  Sender: FDA-Public Use
  Company Number: 2006070544

PATIENT
  Age: 22 Year
  Sex: Male

DRUGS (1)
  1. GEODON [Suspect]
     Indication: ILL-DEFINED DISORDER

REACTIONS (4)
  - INSOMNIA [None]
  - MANIA [None]
  - MYDRIASIS [None]
  - PHYSICAL ASSAULT [None]
